FAERS Safety Report 6216302-2 (Version None)
Quarter: 2009Q2

REPORT INFORMATION
  Report Type: 
  Country: None (occurrence: None)
  Receive Date: 20090605
  Receipt Date: 20090526
  Transmission Date: 20091009
  Serious: Yes (Hospitalization)
  Sender: FDA-Public Use
  Company Number: CA-JNJFOC-20090505887

PATIENT
  Age: 8 Year
  Sex: Male

DRUGS (3)
  1. PARACETAMOL [Suspect]
     Route: 054
  2. PARACETAMOL [Suspect]
     Indication: DRUG USE FOR UNKNOWN INDICATION
     Dosage: 17 MG/KG, Q3H, AROUND THE CLOCK 60 HOURS PRIOR TO ADMISSION, ALLEGED MAXIMUM DOSE 115 MG/KG/DAY
     Route: 054
  3. UNSPECIFIED ANESTHESIA [Concomitant]

REACTIONS (5)
  - ANOREXIA [None]
  - HEPATOTOXICITY [None]
  - LETHARGY [None]
  - OVERDOSE [None]
  - VOMITING [None]
